FAERS Safety Report 23487429 (Version 1)
Quarter: 2024Q1

REPORT INFORMATION
  Report Type: Spontaneous
  Country: GB (occurrence: GB)
  Receive Date: 20240206
  Receipt Date: 20240206
  Transmission Date: 20240409
  Serious: Yes (Life-Threatening)
  Sender: FDA-Public Use
  Company Number: None

PATIENT
  Age: 36 Year
  Sex: Male
  Weight: 79 kg

DRUGS (1)
  1. ACAMPROSATE [Suspect]
     Active Substance: ACAMPROSATE
     Indication: Alcoholism
     Dosage: 666 MILLIGRAM, TID
     Route: 065
     Dates: start: 20240116, end: 20240127

REACTIONS (2)
  - Pancreatitis [Not Recovered/Not Resolved]
  - Medication error [Unknown]

NARRATIVE: CASE EVENT DATE: 20240126
